FAERS Safety Report 5727872-2 (Version None)
Quarter: 2008Q2

REPORT INFORMATION
  Report Type: 
  Country: None (occurrence: None)
  Receive Date: 20080505
  Receipt Date: 20080423
  Transmission Date: 20081010
  Serious: Yes (Other)
  Sender: FDA-Public Use
  Company Number: AR-PFIZER INC-2008035624

PATIENT
  Age: 30 Year
  Sex: Female

DRUGS (7)
  1. LYRICA [Suspect]
     Indication: DIABETIC NEUROPATHY
     Dates: start: 20071001, end: 20080101
  2. LYRICA [Suspect]
     Indication: INSOMNIA
  3. LYRICA [Suspect]
     Indication: GENERALISED ANXIETY DISORDER
  4. DIAZEPAM [Concomitant]
     Indication: GENERALISED ANXIETY DISORDER
  5. DIAZEPAM [Concomitant]
     Indication: INSOMNIA
  6. FOLIC ACID [Concomitant]
     Indication: ANAEMIA
  7. IRON [Concomitant]
     Indication: ANAEMIA

REACTIONS (1)
  - IDIOPATHIC THROMBOCYTOPENIC PURPURA [None]
